FAERS Safety Report 10770334 (Version 2)
Quarter: 2015Q2

REPORT INFORMATION
  Report Type: Spontaneous
  Country: US (occurrence: US)
  Receive Date: 20150206
  Receipt Date: 20150514
  Transmission Date: 20150821
  Serious: Yes (Hospitalization, Other)
  Sender: FDA-Public Use
  Company Number: US-PFIZER INC-2015048189

PATIENT
  Age: 54 Year
  Sex: Male

DRUGS (8)
  1. DEPO-TESTOSTERONE [Suspect]
     Active Substance: TESTOSTERONE CYPIONATE
     Indication: BLOOD TESTOSTERONE DECREASED
     Dosage: UNK, MULTIPLE DOSES
  2. DEPO-TESTOSTERONE [Suspect]
     Active Substance: TESTOSTERONE CYPIONATE
     Indication: HORMONE REPLACEMENT THERAPY
     Dosage: 1 DF, (EVERY 2 WEEKS)
     Dates: start: 20101019
  3. TESTOSTERONE CIPIONATE [Suspect]
     Active Substance: TESTOSTERONE
     Indication: ASTHENIA
     Dosage: 1 DF, (EVERY 2 WEEKS)
     Dates: start: 20131004
  4. TESTOSTERONE CIPIONATE [Suspect]
     Active Substance: TESTOSTERONE
     Indication: LOSS OF LIBIDO
     Dosage: 1 DF, (EVERY 2 WEEKS)
     Dates: start: 20130419
  5. DEPO-TESTOSTERONE [Suspect]
     Active Substance: TESTOSTERONE CYPIONATE
     Indication: ASTHENIA
     Dosage: 1 DF, (EVERY 2 WEEKS)
     Dates: start: 20110621
  6. TESTOSTERONE CIPIONATE [Suspect]
     Active Substance: TESTOSTERONE
     Indication: HORMONE REPLACEMENT THERAPY
  7. DEPO-TESTOSTERONE [Suspect]
     Active Substance: TESTOSTERONE CYPIONATE
     Dosage: 1 DF, (EVERY 2 WEEKS)
     Dates: start: 20140203
  8. DEPO-TESTOSTERONE [Suspect]
     Active Substance: TESTOSTERONE CYPIONATE
     Indication: LOSS OF LIBIDO
     Dosage: 1 DF, (EVERY 2 WEEKS)
     Dates: start: 20110125

REACTIONS (1)
  - Myocardial infarction [Unknown]

NARRATIVE: CASE EVENT DATE: 2012
